FAERS Safety Report 8591269-0 (Version None)
Quarter: 2012Q3

REPORT INFORMATION
  Report Type: 
  Country: None (occurrence: None)
  Receive Date: 20120814
  Receipt Date: 20120629
  Transmission Date: 20120928
  Serious: Yes (Other)
  Sender: FDA-Public Use
  Company Number: US-JNJCP-30000116435

PATIENT
  Sex: Female

DRUGS (3)
  1. NTG SKIN ID CREAM CLEANSER USA NTSICCUS [Suspect]
     Indication: ACNE
     Route: 061
  2. NEUTROGENA DERMATOLOGICS SKIN ID HYDRATOR [Suspect]
     Indication: ACNE
     Route: 061
  3. NEUTROGENA DERMATOLOGICS SKIN ID ANTI ACNE TREATMENT [Suspect]
     Indication: ACNE
     Route: 061

REACTIONS (1)
  - INFERTILITY FEMALE [None]
